FAERS Safety Report 12205932 (Version 1)
Quarter: 2016Q1

REPORT INFORMATION
  Report Type: Report from Study
  Country: BR (occurrence: BR)
  Receive Date: 20160323
  Receipt Date: 20160323
  Transmission Date: 20160526
  Serious: Yes (Hospitalization)
  Sender: FDA-Public Use
  Company Number: BR-ABBVIE-16K-020-1571657-00

PATIENT
  Age: 58 Year
  Sex: Female
  Weight: 76 kg

DRUGS (14)
  1. HUMIRA [Suspect]
     Active Substance: ADALIMUMAB
     Route: 058
  2. ATENOLOL. [Concomitant]
     Active Substance: ATENOLOL
     Indication: BLOOD PRESSURE MANAGEMENT
     Dosage: PATIENT TAKES 3 TABLETS A DAY WHEN SHE FEELS BAD.
     Route: 048
     Dates: start: 2006
  3. ENALAPRIL [Concomitant]
     Active Substance: ENALAPRIL
     Indication: HYPERTENSION
     Route: 048
     Dates: start: 2006
  4. SELENIUM [Concomitant]
     Active Substance: SELENIUM
     Indication: PRODUCT USED FOR UNKNOWN INDICATION
     Route: 048
     Dates: start: 201502
  5. OMEGA 3 [Concomitant]
     Active Substance: OMEGA-3 FATTY ACIDS
     Indication: SEDATIVE THERAPY
     Route: 048
     Dates: start: 201602
  6. HUMIRA [Suspect]
     Active Substance: ADALIMUMAB
     Indication: RHEUMATOID ARTHRITIS
     Route: 058
     Dates: start: 20150903, end: 201512
  7. VITAMIN D [Concomitant]
     Active Substance: CHOLECALCIFEROL
     Indication: VITAMIN D ABNORMAL
     Route: 048
     Dates: start: 2015
  8. VITAMIN D [Concomitant]
     Active Substance: CHOLECALCIFEROL
     Route: 048
     Dates: start: 201601
  9. METFORMIN [Concomitant]
     Active Substance: METFORMIN HYDROCHLORIDE
     Indication: DIABETES MELLITUS
     Route: 048
     Dates: start: 2006
  10. NPH INSULIN [Concomitant]
     Active Substance: INSULIN BEEF
     Indication: DIABETES MELLITUS
     Route: 058
     Dates: start: 2001
  11. REGULAR INSULIN NOVO NORDISK [Concomitant]
     Route: 058
     Dates: start: 2006
  12. FLUXENE [Concomitant]
     Active Substance: FLUOXETINE HYDROCHLORIDE
     Indication: DEPRESSION
     Route: 048
  13. REGULAR INSULIN NOVO NORDISK [Concomitant]
     Indication: DIABETES MELLITUS
     Dosage: 8 UNITS PER DAY
     Route: 058
     Dates: start: 2001
  14. ATENOLOL. [Concomitant]
     Active Substance: ATENOLOL
     Indication: HYPERTENSION

REACTIONS (15)
  - Vitamin C abnormal [Unknown]
  - Musculoskeletal stiffness [Recovered/Resolved]
  - Joint range of motion decreased [Recovered/Resolved]
  - Pain [Recovered/Resolved]
  - Blood magnesium abnormal [Unknown]
  - Arthritis [Recovered/Resolved]
  - Intervertebral disc protrusion [Recovering/Resolving]
  - Depression [Recovered/Resolved]
  - Spinal osteoarthritis [Recovered/Resolved]
  - Exostosis [Recovering/Resolving]
  - Carpal tunnel syndrome [Recovering/Resolving]
  - Malaise [Unknown]
  - Mobility decreased [Unknown]
  - Vitamin D abnormal [Unknown]
  - Sleep disorder [Unknown]

NARRATIVE: CASE EVENT DATE: 201512
